FAERS Safety Report 4313820-9 (Version None)
Quarter: 2004Q1

REPORT INFORMATION
  Report Type: 
  Country: None (occurrence: None)
  Receive Date: 20040305
  Receipt Date: 20040224
  Transmission Date: 20041129
  Serious: Yes (Life-Threatening, Hospitalization)
  Sender: FDA-Public Use
  Company Number: K200400251

PATIENT
  Age: 83 Year
  Sex: Female

DRUGS (13)
  1. ALTACE [Suspect]
     Indication: CARDIAC FAILURE
     Dosage: 5 MG, BID, ORAL
     Route: 048
     Dates: end: 20040106
  2. TRAMADOL HCL [Suspect]
     Dosage: 50 MG, TID, ORAL
     Route: 048
     Dates: start: 20040101, end: 20040106
  3. TIOTROPIUM BROMIDE [Concomitant]
  4. SERETIDE DISKUS [Concomitant]
  5. ACETAMINOPHEN [Concomitant]
  6. IMPUGAN (FUROSEMIDE) [Concomitant]
  7. BAZALIP (BEZAFIBRATE) [Concomitant]
  8. KLEXANE (HEPARIN-FRACTION, SODIUM SALT) [Concomitant]
  9. TROMBYL (ACETYLSALICYLIC ACID) [Concomitant]
  10. IMOVANE (ZOPICLONE) [Concomitant]
  11. EMCONCOR (BISOPROLOL) [Concomitant]
  12. LAXOBERAL ^BOEHRINGER INGELHEIM^ (SODIUM PICOSULFATE) [Concomitant]
  13. FLUTICASONE PROPIONATE [Concomitant]

REACTIONS (10)
  - ANGIONEUROTIC OEDEMA [None]
  - BLOOD CREATININE INCREASED [None]
  - BURSITIS [None]
  - C-REACTIVE PROTEIN INCREASED [None]
  - ERYSIPELAS [None]
  - LARYNGEAL OEDEMA [None]
  - OEDEMA MOUTH [None]
  - OROPHARYNGEAL SWELLING [None]
  - SWOLLEN TONGUE [None]
  - UPPER RESPIRATORY TRACT INFECTION [None]
